FAERS Safety Report 22810293 (Version 13)
Quarter: 2024Q2

REPORT INFORMATION
  Report Type: Spontaneous
  Country: US (occurrence: US)
  Receive Date: 20230810
  Receipt Date: 20240513
  Transmission Date: 20240716
  Serious: Yes (Hospitalization)
  Sender: FDA-Public Use
  Company Number: US-PFIZER INC-PV202300137373

PATIENT
  Age: 67 Year
  Sex: Female
  Weight: 77.098 kg

DRUGS (3)
  1. BRAFTOVI [Suspect]
     Active Substance: ENCORAFENIB
     Indication: Colon cancer
     Dosage: TAKE 4 CAPSULES DAILY/TAKE 4 CAPSULES BY MOUTH DAILY. MAY BE TAKEN WITH OR WITHOUT FOOD
     Route: 048
     Dates: start: 202307
  2. BRAFTOVI [Suspect]
     Active Substance: ENCORAFENIB
     Dosage: 300 MG, DAILY (TAKE 4 CAPSULES BY MOUTH DAILY. MAY BE TAKEN WITH OR WITHOUT FOOD)
     Route: 048
     Dates: start: 20240402
  3. ERBITUX [Concomitant]
     Active Substance: CETUXIMAB
     Dosage: UNK

REACTIONS (4)
  - Hypoacusis [Not Recovered/Not Resolved]
  - Melanocytic naevus [Unknown]
  - Nausea [Unknown]
  - Fatigue [Unknown]

NARRATIVE: CASE EVENT DATE: 20230701
